FAERS Safety Report 10368631 (Version 1)
Quarter: 2014Q3

REPORT INFORMATION
  Report Type: Spontaneous
  Country: JP (occurrence: JP)
  Receive Date: 20140807
  Receipt Date: 20140807
  Transmission Date: 20150326
  Serious: Yes (Other)
  Sender: FDA-Public Use
  Company Number: PHHY2013JP159786

PATIENT
  Age: 53 Year
  Sex: Male

DRUGS (1)
  1. AFINITOR [Suspect]
     Active Substance: EVEROLIMUS
     Dates: start: 20130405, end: 20130705

REACTIONS (3)
  - Metastases to adrenals [Unknown]
  - Disease progression [Unknown]
  - Metastases to liver [Unknown]
